FAERS Safety Report 5270720-8 (Version None)
Quarter: 2007Q1

REPORT INFORMATION
  Report Type: 
  Country: None (occurrence: None)
  Receive Date: 20070319
  Receipt Date: 20070319
  Transmission Date: 20070707
  Serious: Yes (Disabling)
  Sender: FDA-Public Use
  Company Number: None

PATIENT
  Age: 55 Year
  Sex: Female
  Weight: 74.8435 kg

DRUGS (1)
  1. FLONASE [Suspect]
     Indication: RHINORRHOEA
     Dosage: PUFF  BID  NASAL
     Route: 045
     Dates: start: 20050101, end: 20060101

REACTIONS (2)
  - INCORRECT ROUTE OF DRUG ADMINISTRATION [None]
  - SELF-MEDICATION [None]
